FAERS Safety Report 6249998-X (Version None)
Quarter: 2009Q2

REPORT INFORMATION
  Report Type: 
  Country: None (occurrence: None)
  Receive Date: 20090625
  Receipt Date: 20090622
  Transmission Date: 20091009
  Serious: Yes (Life-Threatening)
  Sender: FDA-Public Use
  Company Number: 304617

PATIENT
  Age: 46 Year
  Sex: Male
  Weight: 65 kg

DRUGS (5)
  1. PRECEDEX [Suspect]
     Indication: SEDATION
     Dosage: UNKNOWN, INTRAVENOUS
     Route: 042
     Dates: start: 20090508, end: 20090509
  2. CEFOPERZONE SODIUM/ SULBACTAM SODIUM [Concomitant]
  3. PROPOFOL [Concomitant]
  4. MIDAZOLAM HCL [Concomitant]
  5. SEVOFLURANE [Concomitant]

REACTIONS (2)
  - CARDIAC PROCEDURE COMPLICATION [None]
  - CARDIAC TAMPONADE [None]
